FAERS Safety Report 11034152 (Version 1)
Quarter: 2015Q2

REPORT INFORMATION
  Report Type: Report from Study
  Country: US (occurrence: US)
  Receive Date: 20150415
  Receipt Date: 20150415
  Transmission Date: 20150821
  Serious: No
  Sender: FDA-Public Use
  Company Number: US-SA-2014SA136132

PATIENT
  Age: 57 Year
  Sex: Female

DRUGS (1)
  1. KYNAMRO [Suspect]
     Active Substance: MIPOMERSEN SODIUM
     Indication: TYPE IIA HYPERLIPIDAEMIA
     Route: 058
     Dates: start: 201409, end: 201503

REACTIONS (9)
  - Influenza like illness [Not Recovered/Not Resolved]
  - Drug dose omission [Unknown]
  - Injection site rash [Not Recovered/Not Resolved]
  - Chromaturia [Unknown]
  - Injection site pain [Unknown]
  - Injection site pain [Not Recovered/Not Resolved]
  - Hepatic enzyme increased [Unknown]
  - Back pain [Unknown]
  - Headache [Not Recovered/Not Resolved]

NARRATIVE: CASE EVENT DATE: 2014
